FAERS Safety Report 6405882-X (Version None)
Quarter: 2009Q4

REPORT INFORMATION
  Report Type: 
  Country: None (occurrence: None)
  Receive Date: 20091016
  Receipt Date: 20091016
  Transmission Date: 20100525
  Serious: No
  Sender: FDA-Public Use
  Company Number: None

PATIENT
  Age: 53 Year
  Sex: Male
  Weight: 72.5755 kg

DRUGS (2)
  1. PIOGLITAZONE [Suspect]
  2. PROLIXIN [Suspect]
     Dosage: 10 MG FIVE TIMES PER DAY

REACTIONS (7)
  - ABNORMAL BEHAVIOUR [None]
  - AGGRESSION [None]
  - ALCOHOLISM [None]
  - CONDITION AGGRAVATED [None]
  - DELUSION [None]
  - PERSONALITY CHANGE [None]
  - PHYSICAL ABUSE [None]
